FAERS Safety Report 8167350-7 (Version None)
Quarter: 2012Q1

REPORT INFORMATION
  Report Type: 
  Country: None (occurrence: None)
  Receive Date: 20120227
  Receipt Date: 20120220
  Transmission Date: 20120608
  Serious: Yes (Hospitalization)
  Sender: FDA-Public Use
  Company Number: FR-JNJFOC-20120210584

PATIENT
  Sex: Female

DRUGS (26)
  1. NIZORAL [Suspect]
     Route: 048
     Dates: start: 20111226
  2. NIZORAL [Suspect]
     Route: 048
     Dates: start: 20120101
  3. NIZORAL [Suspect]
     Route: 048
     Dates: start: 20100401
  4. METOPIRONE [Suspect]
     Route: 048
     Dates: start: 20110328
  5. NIZORAL [Suspect]
     Route: 048
     Dates: start: 20110601
  6. NIZORAL [Suspect]
     Route: 048
     Dates: end: 20111021
  7. ALDACTONE [Concomitant]
     Dosage: AT THE MORNING
     Route: 065
  8. NIZORAL [Suspect]
     Indication: HYPERCORTICOIDISM
     Route: 048
  9. NIZORAL [Suspect]
     Dosage: MORNING AND EVENING
     Route: 048
     Dates: end: 20110201
  10. METOPIRONE [Suspect]
     Route: 048
     Dates: start: 20110101
  11. TAMOXIFEN CITRATE [Concomitant]
     Dosage: AT THE MORNING
     Route: 065
  12. METOPIRONE [Suspect]
     Route: 048
     Dates: start: 20110110
  13. EZETIMIBE [Concomitant]
     Dosage: AT THE EVENING
     Route: 065
  14. METOPIRONE [Suspect]
     Indication: HYPERCORTICOIDISM
     Route: 048
  15. METOPIRONE [Suspect]
     Route: 048
     Dates: start: 20110106
  16. METOPIRONE [Suspect]
     Route: 048
     Dates: start: 20110701
  17. METOPIRONE [Suspect]
     Route: 048
     Dates: end: 20111021
  18. CRESTOR [Concomitant]
     Dosage: AT THE EVENING
     Route: 065
  19. VITAMIN D [Concomitant]
     Route: 065
  20. NIZORAL [Suspect]
     Route: 048
     Dates: start: 20120101
  21. METOPIRONE [Suspect]
     Dosage: 2 TABLETS IN MORNING, 1 TABLET AT MID DAY, 1 TABLET AT THE EVENING AND 2 TABLETS AT BED TIME.
     Route: 048
     Dates: start: 20120101
  22. NIZORAL [Suspect]
     Route: 048
     Dates: start: 20120101
  23. NIZORAL [Suspect]
     Route: 048
     Dates: start: 20101201
  24. METOPIRONE [Suspect]
     Route: 048
     Dates: start: 20120101
  25. LEVOTHYROXINE SODIUM [Concomitant]
  26. PROTELOS [Concomitant]
     Dosage: FOR MIDDAY
     Route: 065

REACTIONS (3)
  - MYOCLONUS [None]
  - ASTHENIA [None]
  - OFF LABEL USE [None]
